FAERS Safety Report 8518017-4 (Version None)
Quarter: 2012Q3

REPORT INFORMATION
  Report Type: 
  Country: None (occurrence: None)
  Receive Date: 20120718
  Receipt Date: 20110804
  Transmission Date: 20120928
  Serious: No
  Sender: FDA-Public Use
  Company Number: US-BRISTOL-MYERS SQUIBB COMPANY-15947310

PATIENT
  Age: 82 Year
  Sex: Female

DRUGS (6)
  1. WARFARIN SODIUM [Suspect]
     Dates: start: 20101101
  2. CALCIUM CARBONATE [Concomitant]
  3. LISINOPRIL [Concomitant]
  4. LYRICA [Concomitant]
  5. CARDIZEM [Concomitant]
  6. VITAMIN D [Concomitant]

REACTIONS (1)
  - INTERNATIONAL NORMALISED RATIO DECREASED [None]
